FAERS Safety Report 9437330 (Version 1)
Quarter: 2013Q3

REPORT INFORMATION
  Report Type: Spontaneous
  Country: AU (occurrence: AU)
  Receive Date: 20130802
  Receipt Date: 20130802
  Transmission Date: 20140515
  Serious: Yes (Hospitalization)
  Sender: FDA-Public Use
  Company Number: AU-RANBAXY-2006US-01664

PATIENT
  Age: 73 Year
  Sex: Female

DRUGS (1)
  1. PARACETAMOL [Suspect]
     Indication: PRODUCT USED FOR UNKNOWN INDICATION
     Route: 048

REACTIONS (7)
  - Intentional overdose [Recovered/Resolved]
  - Alanine aminotransferase increased [Recovered/Resolved]
  - International normalised ratio increased [Recovered/Resolved]
  - Coma [Recovered/Resolved]
  - Pneumonia aspiration [Recovered/Resolved]
  - Cardiotoxicity [Recovered/Resolved]
  - Sepsis [Recovered/Resolved]
